FAERS Safety Report 25263113 (Version 2)
Quarter: 2025Q3

REPORT INFORMATION
  Report Type: Spontaneous
  Country: US (occurrence: US)
  Receive Date: 20250502
  Receipt Date: 20250711
  Transmission Date: 20251021
  Serious: Yes (Other)
  Sender: ABBVIE
  Company Number: US-ABBVIE-6253460

PATIENT
  Sex: Female

DRUGS (3)
  1. LINACLOTIDE [Suspect]
     Active Substance: LINACLOTIDE
     Indication: Constipation
     Route: 048
     Dates: start: 202412, end: 20250220
  2. PAXLOVID [Suspect]
     Active Substance: NIRMATRELVIR\RITONAVIR
     Indication: COVID-19
     Route: 065
     Dates: start: 20250211, end: 20250225
  3. CORTISONE [Concomitant]
     Active Substance: CORTISONE
     Indication: Eczema

REACTIONS (11)
  - Deafness [Unknown]
  - Blister [Unknown]
  - Constipation [Unknown]
  - Rash pruritic [Recovering/Resolving]
  - Rash papular [Recovering/Resolving]
  - Drug eruption [Recovering/Resolving]
  - Ear swelling [Unknown]
  - Feeling hot [Unknown]
  - Ear pain [Unknown]
  - Urticaria [Recovering/Resolving]
  - Rash macular [Recovering/Resolving]

NARRATIVE: CASE EVENT DATE: 20250101
